FAERS Safety Report 10387856 (Version 1)
Quarter: 2014Q1

REPORT INFORMATION
  Report Type: Spontaneous
  Country: US (occurrence: None)
  Receive Date: 20140306
  Receipt Date: 20140306
  Transmission Date: 20141002
  Serious: Yes (Other)
  Sender: FDA-Public Use
  Company Number: 163-21880-13121236

PATIENT
  Age: 85 Year
  Sex: Male

DRUGS (4)
  1. REVLIMID (LENALIDOMIDE) (CAPSULES) [Suspect]
     Indication: PLASMA CELL MYELOMA
     Dosage: 21 IN 28 D
     Route: 048
     Dates: start: 2011, end: 2013
  2. CYMBALTA (DULOXETINE HYDROCHLORIDE) [Concomitant]
  3. GABAPENTIN [Concomitant]
  4. BORTEZOMIB [Concomitant]

REACTIONS (3)
  - Pancytopenia [None]
  - Plasma cell myeloma [None]
  - Neuropathy peripheral [None]
